FAERS Safety Report 4752910-3 (Version None)
Quarter: 2005Q3

REPORT INFORMATION
  Report Type: 
  Country: None (occurrence: None)
  Receive Date: 20050714
  Receipt Date: 20041208
  Transmission Date: 20060218
  Serious: Yes (Hospitalization)
  Sender: FDA-Public Use
  Company Number: 200419418US

PATIENT
  Age: 81 Year
  Sex: Male

DRUGS (3)
  1. TAXOTERE [Suspect]
  2. THALIDOMIDE (THALOMID) TABLETS [Suspect]
     Indication: PROSTATE CANCER
     Dosage: 100-200 MG QD PO
     Route: 048
  3. THALIDOMIDE (THALOMID) CAPSULES [Suspect]
     Indication: PROSTATE CANCER
     Dosage: 50 MG PO
     Route: 048
     Dates: start: 20031209

REACTIONS (2)
  - CARDIAC FAILURE CONGESTIVE [None]
  - PLEURAL EFFUSION [None]
